FAERS Safety Report 25803721 (Version 1)
Quarter: 2025Q3

REPORT INFORMATION
  Report Type: Spontaneous
  Country: TW (occurrence: TW)
  Receive Date: 20250915
  Receipt Date: 20250915
  Transmission Date: 20251020
  Serious: Yes (Death)
  Sender: ELI LILLY AND COMPANY
  Company Number: TW-ELI_LILLY_AND_COMPANY-TW202509012648

PATIENT
  Age: 70 Year
  Sex: Female

DRUGS (1)
  1. VERZENIO [Suspect]
     Active Substance: ABEMACICLIB
     Indication: Breast cancer metastatic
     Dosage: 150 MG, DAILY
     Route: 065

REACTIONS (2)
  - Death [Fatal]
  - Off label use [Unknown]
